FAERS Safety Report 19997281 (Version 2)
Quarter: 2021Q4

REPORT INFORMATION
  Report Type: Report from Study
  Country: DE (occurrence: DE)
  Receive Date: 20211026
  Receipt Date: 20211030
  Transmission Date: 20220303
  Serious: Yes (Other)
  Sender: FDA-Public Use
  Company Number: DE-NOVARTISPH-NVSC2021DE219502

PATIENT
  Sex: Female
  Weight: 71 kg

DRUGS (2)
  1. GILENYA [Suspect]
     Active Substance: FINGOLIMOD HYDROCHLORIDE
     Indication: Multiple sclerosis
     Dosage: 0.5 MG, QD
     Route: 048
     Dates: start: 20190225
  2. VITAMIN D [Concomitant]
     Active Substance: VITAMIN D NOS
     Indication: Nervous system disorder prophylaxis
     Dosage: 1000 IU
     Route: 048

REACTIONS (3)
  - CD4 lymphocytes decreased [Unknown]
  - Leukopenia [Recovering/Resolving]
  - Lymphopenia [Unknown]

NARRATIVE: CASE EVENT DATE: 20190909
